FAERS Safety Report 8537109-7 (Version None)
Quarter: 2012Q3

REPORT INFORMATION
  Report Type: 
  Country: None (occurrence: None)
  Receive Date: 20120725
  Receipt Date: 20120719
  Transmission Date: 20120928
  Serious: Yes (Death, Hospitalization)
  Sender: FDA-Public Use
  Company Number: US-ALEXION PHARMACEUTICALS INC.-A201201378

PATIENT
  Sex: Male
  Weight: 65 kg

DRUGS (10)
  1. PREDNISONE [Concomitant]
     Indication: MYELODYSPLASTIC SYNDROME
  2. REVLIMID [Concomitant]
     Indication: PAROXYSMAL NOCTURNAL HAEMOGLOBINURIA
     Dosage: 10 MG, QD
     Route: 048
     Dates: start: 20120709, end: 20120723
  3. ZOFRAN [Concomitant]
     Indication: NAUSEA
     Dosage: 8 MG, PRN
     Route: 048
     Dates: end: 20120723
  4. SOLIRIS [Suspect]
     Dosage: 600 MG, QW
     Route: 042
     Dates: start: 20120502, end: 20120523
  5. COMPAZINE [Concomitant]
     Indication: NAUSEA
     Dosage: 10 MG, PRN Q4-6H
     Route: 048
     Dates: end: 20120723
  6. REVLIMID [Concomitant]
     Indication: MYELODYSPLASTIC SYNDROME
  7. SOLIRIS [Suspect]
     Indication: PAROXYSMAL NOCTURNAL HAEMOGLOBINURIA
     Dosage: 900 MG, SINGLE
     Route: 042
     Dates: start: 20120530, end: 20120530
  8. COUMADIN [Concomitant]
     Indication: THROMBOSIS PROPHYLAXIS
     Dosage: 2 MG, QD
     Route: 048
     Dates: end: 20120723
  9. PREDNISONE [Concomitant]
     Indication: PAROXYSMAL NOCTURNAL HAEMOGLOBINURIA
     Dosage: 20 MG, QD X 3 DAYS
     Route: 048
     Dates: end: 20120723
  10. NEURONTIN [Concomitant]
     Indication: NEUROPATHY PERIPHERAL
     Dosage: 100 MG, TID
     Route: 048
     Dates: end: 20120723

REACTIONS (4)
  - FALL [None]
  - MUSCULAR WEAKNESS [None]
  - MENTAL STATUS CHANGES [None]
  - DEATH [None]
